FAERS Safety Report 25401576 (Version 1)
Quarter: 2025Q2

REPORT INFORMATION
  Report Type: Spontaneous
  Country: US (occurrence: US)
  Receive Date: 20250605
  Receipt Date: 20250605
  Transmission Date: 20250716
  Serious: No
  Sender: IBSA INSTITUT BIOCHIMIQUE
  Company Number: US-IBSA PHARMA INC.-2024IBS000281

PATIENT

DRUGS (2)
  1. LIDOCAINE [Suspect]
     Active Substance: LIDOCAINE
     Indication: Neuralgia
     Dosage: UNK UNK, QD
     Route: 065
     Dates: start: 20240613
  2. COENZYME Q10 [Concomitant]
     Active Substance: DIETARY SUPPLEMENT\UBIDECARENONE
     Indication: Product used for unknown indication
     Route: 065

REACTIONS (4)
  - Brain fog [Unknown]
  - Somnolence [Unknown]
  - Memory impairment [Unknown]
  - Off label use [Unknown]

NARRATIVE: CASE EVENT DATE: 20240601
